FAERS Safety Report 5811608-0 (Version None)
Quarter: 2008Q3

REPORT INFORMATION
  Report Type: 
  Country: None (occurrence: None)
  Receive Date: 20080716
  Receipt Date: 20080711
  Transmission Date: 20090109
  Serious: No
  Sender: FDA-Public Use
  Company Number: US-ASTRAZENECA-2008UW02205

PATIENT
  Age: 36 Year
  Sex: Female
  Weight: 100 kg

DRUGS (9)
  1. SEROQUEL [Suspect]
     Indication: DEPRESSION
     Route: 048
     Dates: start: 20040201, end: 20070501
  2. SEROQUEL [Suspect]
     Indication: ANXIETY
     Route: 048
     Dates: start: 20040201, end: 20070501
  3. SEROQUEL [Suspect]
     Indication: POST-TRAUMATIC STRESS DISORDER
     Route: 048
     Dates: start: 20040201, end: 20070501
  4. SEROQUEL [Suspect]
     Route: 048
     Dates: start: 20040201, end: 20070501
  5. SEROQUEL [Suspect]
     Route: 048
     Dates: start: 20040201, end: 20070501
  6. SEROQUEL [Suspect]
     Route: 048
     Dates: start: 20040201, end: 20070501
  7. EFFEXOR [Concomitant]
     Dates: start: 20040101
  8. PAXIL [Concomitant]
     Dates: start: 20040101
  9. TNAZOSIN [Concomitant]
     Dates: start: 20040101

REACTIONS (4)
  - AMNESIA [None]
  - DIABETES MELLITUS [None]
  - GLYCOSURIA [None]
  - HYPERGLYCAEMIA [None]
